FAERS Safety Report 8560863-5 (Version None)
Quarter: 2012Q3

REPORT INFORMATION
  Report Type: 
  Country: None (occurrence: None)
  Receive Date: 20120727
  Receipt Date: 20120727
  Transmission Date: 20120928
  Serious: Yes (Hospitalization)
  Sender: FDA-Public Use
  Company Number: None

PATIENT
  Age: 86 Year
  Sex: Female
  Weight: 70 kg

DRUGS (13)
  1. TOBRAMYCIN [Concomitant]
  2. TRAVATAN [Concomitant]
  3. AZOPT [Concomitant]
  4. REFRESH PM [Concomitant]
  5. FISH OIL [Concomitant]
  6. AMIODARONE HCL [Concomitant]
  7. TYLENOL [Concomitant]
  8. PREDNISONE TAB [Concomitant]
  9. LEVOXYL [Concomitant]
  10. COUMADIN [Suspect]
     Indication: ATRIAL FIBRILLATION
     Dosage: 6MG / 7.5MG   MF/ SSTWTH  PO/PO  CHRONIC
     Route: 048
  11. CALCIUM CARBONATE [Concomitant]
  12. CARBIDOPA AND LEVODOPA [Concomitant]
  13. PECAN VITAMINS [Concomitant]

REACTIONS (5)
  - BLOOD PRESSURE INCREASED [None]
  - INTERNATIONAL NORMALISED RATIO INCREASED [None]
  - HAEMATOCHEZIA [None]
  - OCULAR RETROBULBAR HAEMORRHAGE [None]
  - PAIN [None]
